FAERS Safety Report 23527028 (Version 1)
Quarter: 2024Q1

REPORT INFORMATION
  Report Type: Report from Study
  Country: JP (occurrence: JP)
  Receive Date: 20240215
  Receipt Date: 20240215
  Transmission Date: 20240409
  Serious: Yes (Death)
  Sender: FDA-Public Use
  Company Number: JP-ORPHANEU-2024000979

PATIENT

DRUGS (6)
  1. ISTURISA [Suspect]
     Active Substance: OSILODROSTAT PHOSPHATE
     Indication: Cushing^s syndrome
     Dosage: 1 MILLIGRAM, BID
     Route: 048
     Dates: start: 20211022, end: 20240116
  2. EDOXABAN TOSYLATE [Concomitant]
     Active Substance: EDOXABAN TOSYLATE
     Indication: Disease complication
     Dosage: 30 MG, DAILY
     Route: 048
     Dates: start: 20151020, end: 20240116
  3. LINAGLIPTIN [Concomitant]
     Active Substance: LINAGLIPTIN
     Indication: Disease complication
     Dosage: 5 MG, DAILY
     Route: 048
     Dates: start: 20180416, end: 20240116
  4. MAGNESIUM OXIDE [Concomitant]
     Active Substance: MAGNESIUM OXIDE
     Indication: Disease complication
     Dosage: 330 MG, DAILY
     Route: 048
     Dates: start: 20190719, end: 20240116
  5. SENNOSIDES [Concomitant]
     Active Substance: SENNOSIDES
     Indication: Disease complication
     Dosage: 12 MG, DAILY
     Route: 048
     Dates: start: 20220314, end: 20240116
  6. ENALAPRIL [Concomitant]
     Active Substance: ENALAPRIL
     Indication: Disease complication
     Dosage: 2.5 MILLIGRAM DAILY
     Route: 048
     Dates: start: 20210310, end: 20211105

REACTIONS (3)
  - Marasmus [Fatal]
  - Pneumonia bacterial [Fatal]
  - Cardiac failure congestive [Fatal]
